FAERS Safety Report 11213417 (Version 2)
Quarter: 2015Q3

REPORT INFORMATION
  Report Type: Spontaneous
  Country: TR (occurrence: TR)
  Receive Date: 20150623
  Receipt Date: 20150701
  Transmission Date: 20151125
  Serious: Yes (Other)
  Sender: FDA-Public Use
  Company Number: CHPA2015TR007466

PATIENT
  Age: 32 Year
  Sex: Male

DRUGS (1)
  1. OTRIVIN [Suspect]
     Active Substance: XYLOMETAZOLINE
     Indication: PRODUCT USED FOR UNKNOWN INDICATION
     Dosage: UNK UNK, BID
     Route: 045
     Dates: start: 201505, end: 201505

REACTIONS (5)
  - Mood altered [Unknown]
  - Anosmia [Recovered/Resolved]
  - Nasal discomfort [Recovered/Resolved]
  - Headache [Recovered/Resolved]
  - Ageusia [Recovered/Resolved]
